FAERS Safety Report 9063800 (Version 4)
Quarter: 2013Q2

REPORT INFORMATION
  Report Type: Report from Study
  Country: GB (occurrence: GB)
  Receive Date: 20130213
  Receipt Date: 20130416
  Transmission Date: 20140414
  Serious: Yes (Hospitalization, Other)
  Sender: FDA-Public Use
  Company Number: GB-PFIZER INC-2013019723

PATIENT
  Age: 49 Year
  Sex: Female
  Weight: 80 kg

DRUGS (13)
  1. DOCETAXEL [Suspect]
     Indication: BREAST CANCER
     Dosage: 100 MG/M2, EVERY 3 WEEKS
     Route: 065
     Dates: start: 20121206
  2. DOCETAXEL [Suspect]
     Dosage: 150 MG/M2, EVERY 3 WEEKS
     Route: 065
     Dates: start: 20121227, end: 20130117
  3. CYCLOPHOSPHAMIDE [Suspect]
     Indication: BREAST CANCER
     Dosage: UNK, 1/1 DAYS
     Route: 065
     Dates: start: 20121004, end: 20121115
  4. EPIRUBICIN HCL [Suspect]
     Indication: BREAST CANCER
     Dosage: UNK, 1/1 DAY
     Route: 065
     Dates: start: 20121004, end: 20121115
  5. FLUOROURACIL [Suspect]
     Indication: BREAST CANCER
     Dosage: UNK, 1/1 DAY
     Route: 065
     Dates: start: 20121004, end: 20121115
  6. TRASTUZUMAB [Suspect]
     Indication: BREAST CANCER
     Dosage: 600 MG, EVERY 3 WEEKS
     Route: 058
     Dates: start: 20121205
  7. APREPITANT [Concomitant]
     Dosage: 125 (ONCE PRIOR TO EACH CYCLE OF CHEMO)
     Dates: start: 20121115, end: 20121118
  8. APREPITANT [Concomitant]
     Dosage: FOR 2 DAYS (1 IN 1D)
     Dates: start: 20121116
  9. DEXAMETHASONE [Concomitant]
     Dosage: 8 MG, 2X/DAY (3 DAYS WITH EACH CYCLE)
     Dates: start: 20121004, end: 20121230
  10. DEXAMETHASONE [Concomitant]
     Dosage: 1 DF, 1X/DAY
     Dates: start: 20121205
  11. RATIOGRASTIM [Concomitant]
     Dosage: 48 UG, UNK
     Dates: start: 20121004, end: 20130122
  12. LOSEC [Concomitant]
     Dosage: 20 MG, UNK
     Dates: start: 20121211
  13. OTEX [Concomitant]
     Dosage: 20 MG, UNK
     Dates: start: 20121213

REACTIONS (3)
  - Pyrexia [Recovered/Resolved]
  - Lower respiratory tract infection [Recovered/Resolved]
  - Pyrexia [Recovered/Resolved]
